FAERS Safety Report 16760147 (Version 1)
Quarter: 2019Q3

REPORT INFORMATION
  Report Type: Spontaneous
  Country: US (occurrence: US)
  Receive Date: 20190830
  Receipt Date: 20190830
  Transmission Date: 20191005
  Serious: No
  Sender: FDA-Public Use
  Company Number: US-PFIZER INC-2019370016

PATIENT
  Age: 59 Year
  Sex: Female

DRUGS (1)
  1. METHOTREXATE SODIUM. [Suspect]
     Active Substance: METHOTREXATE SODIUM
     Dosage: UNK, WEEKLY [0,6CC/WEEK]
     Dates: start: 201710

REACTIONS (6)
  - Drug intolerance [Unknown]
  - Feeling abnormal [Unknown]
  - Irritability [Unknown]
  - Joint stiffness [Unknown]
  - Therapeutic product effect incomplete [Unknown]
  - Mucosal inflammation [Unknown]
